FAERS Safety Report 13943004 (Version 1)
Quarter: 2017Q3

REPORT INFORMATION
  Report Type: Spontaneous
  Country: FR (occurrence: FR)
  Receive Date: 20170907
  Receipt Date: 20170907
  Transmission Date: 20171128
  Serious: Yes (Other)
  Sender: FDA-Public Use
  Company Number: FR-MYLANLABS-2017M1055602

PATIENT
  Age: 24 Year
  Sex: Male
  Weight: 72 kg

DRUGS (5)
  1. LAMICTAL [Concomitant]
     Active Substance: LAMOTRIGINE
     Indication: PRODUCT USED FOR UNKNOWN INDICATION
     Dosage: 350 MG, QD
     Dates: start: 20161206
  2. LEPONEX [Suspect]
     Active Substance: CLOZAPINE
     Dosage: 200 MG, QD
     Dates: end: 20161205
  3. LEPONEX [Suspect]
     Active Substance: CLOZAPINE
     Dosage: 75 MG, QD
     Dates: start: 20170422
  4. LEPONEX [Suspect]
     Active Substance: CLOZAPINE
     Indication: PRODUCT USED FOR UNKNOWN INDICATION
     Dosage: UNK
     Dates: start: 2010
  5. LEPONEX [Suspect]
     Active Substance: CLOZAPINE
     Dosage: 275 MG, QD
     Dates: start: 2017

REACTIONS (8)
  - Fall [Recovered/Resolved]
  - Skull fracture [Not Recovered/Not Resolved]
  - Decreased activity [Unknown]
  - Sinus tachycardia [Not Recovered/Not Resolved]
  - Seizure [Unknown]
  - Epilepsy [Recovered/Resolved]
  - Drug titration error [Unknown]
  - Pallor [Not Recovered/Not Resolved]

NARRATIVE: CASE EVENT DATE: 2017
